FAERS Safety Report 12072509 (Version 2)
Quarter: 2016Q1

REPORT INFORMATION
  Report Type: Not Available
  Country: NO (occurrence: NO)
  Receive Date: 20160212
  Receipt Date: 20160223
  Transmission Date: 20160526
  Serious: Yes (Other)
  Sender: FDA-Public Use
  Company Number: NO-PURDUE PHARMA-GBR-2016-0033971

PATIENT
  Sex: Female

DRUGS (5)
  1. MECILLINAM [Suspect]
     Active Substance: AMDINOCILLIN
     Indication: PRODUCT USED FOR UNKNOWN INDICATION
     Route: 064
  2. PARACETAMOL [Suspect]
     Active Substance: ACETAMINOPHEN
     Indication: PRODUCT USED FOR UNKNOWN INDICATION
     Route: 064
  3. SYMBICORT [Suspect]
     Active Substance: BUDESONIDE\FORMOTEROL FUMARATE DIHYDRATE
     Indication: PRODUCT USED FOR UNKNOWN INDICATION
     Route: 064
  4. MORPHINE SULFATE. [Suspect]
     Active Substance: MORPHINE SULFATE
     Indication: PRODUCT USED FOR UNKNOWN INDICATION
     Route: 064
  5. DICLOFENAC [Suspect]
     Active Substance: DICLOFENAC
     Indication: PRODUCT USED FOR UNKNOWN INDICATION
     Route: 064

REACTIONS (10)
  - Live birth [Unknown]
  - Generalised oedema [Recovered/Resolved]
  - Right ventricular failure [Recovered/Resolved]
  - Cyanosis [Recovered/Resolved]
  - Ductus arteriosus premature closure [Recovered/Resolved]
  - Foetal exposure during pregnancy [Unknown]
  - Congenital pulmonary hypertension [Recovered/Resolved]
  - Foetal heart rate abnormal [Recovered/Resolved]
  - Tricuspid valve incompetence [Recovered/Resolved]
  - Ascites [Recovered/Resolved]
